FAERS Safety Report 20903530 (Version 1)
Quarter: 2022Q2

REPORT INFORMATION
  Report Type: Spontaneous
  Country: CN (occurrence: CN)
  Receive Date: 20220602
  Receipt Date: 20220602
  Transmission Date: 20220721
  Serious: Yes (Other)
  Sender: FDA-Public Use
  Company Number: CN-SUN PHARMACEUTICAL INDUSTRIES LTD-2022R1-338806

PATIENT
  Age: 28 Year
  Sex: Male

DRUGS (4)
  1. TEMOZOLOMIDE [Suspect]
     Active Substance: TEMOZOLOMIDE
     Indication: Glioblastoma
     Dosage: 75 MILLIGRAM/SQ. METER, DAILY
     Route: 065
     Dates: start: 202006
  2. TEMOZOLOMIDE [Suspect]
     Active Substance: TEMOZOLOMIDE
     Dosage: 150 MILLIGRAM/SQ. METER, DAILY
     Route: 065
     Dates: start: 202007
  3. TEMOZOLOMIDE [Suspect]
     Active Substance: TEMOZOLOMIDE
     Dosage: 100 MILLIGRAM/SQ. METER, DAILY
     Route: 065
     Dates: start: 202007
  4. APATINIB [Concomitant]
     Active Substance: APATINIB
     Indication: Glioblastoma
     Dosage: 250 MILLIGRAM, DAILY
     Route: 048

REACTIONS (1)
  - Drug resistance [Unknown]
